FAERS Safety Report 5787784-5 (Version None)
Quarter: 2008Q2

REPORT INFORMATION
  Report Type: 
  Country: None (occurrence: None)
  Receive Date: 20080625
  Receipt Date: 20080611
  Transmission Date: 20081010
  Serious: Yes (Other)
  Sender: FDA-Public Use
  Company Number: PHHY2008DE10675

PATIENT
  Sex: Female

DRUGS (2)
  1. VOLTAREN [Suspect]
     Dosage: 2 DF/DAY
     Route: 048
     Dates: start: 20080519, end: 20080601
  2. VOLTAREN [Suspect]
     Dosage: UNK
     Route: 061
     Dates: start: 20080519, end: 20080601

REACTIONS (5)
  - BLOOD PRESSURE INCREASED [None]
  - DYSPNOEA [None]
  - OEDEMA [None]
  - PETECHIAE [None]
  - TREMOR [None]
